FAERS Safety Report 5349663-7 (Version None)
Quarter: 2007Q2

REPORT INFORMATION
  Report Type: 
  Country: None (occurrence: None)
  Receive Date: 20070607
  Receipt Date: 20070531
  Transmission Date: 20071010
  Serious: Yes (Other)
  Sender: FDA-Public Use
  Company Number: CA-ASTRAZENECA-2007UW13245

PATIENT
  Age: 53 Year
  Sex: Female

DRUGS (4)
  1. ARIMIDEX [Suspect]
     Route: 048
     Dates: start: 20060401, end: 20070401
  2. ARIMIDEX [Suspect]
     Route: 048
     Dates: start: 20070401, end: 20070515
  3. ARIMIDEX [Suspect]
     Route: 048
     Dates: start: 20070501
  4. WELLBUTRIN [Concomitant]

REACTIONS (8)
  - BONE PAIN [None]
  - CONFUSIONAL STATE [None]
  - COUGH [None]
  - DENTAL DISCOMFORT [None]
  - DYSPNOEA [None]
  - MYALGIA [None]
  - PALATAL DISORDER [None]
  - PARAESTHESIA [None]
